FAERS Safety Report 22269417 (Version 1)
Quarter: 2023Q2

REPORT INFORMATION
  Report Type: Spontaneous
  Country: US (occurrence: None)
  Receive Date: 20230429
  Receipt Date: 20230429
  Transmission Date: 20230722
  Serious: No
  Sender: FDA-Public Use
  Company Number: None

PATIENT
  Age: 37 Year
  Sex: Male

DRUGS (1)
  1. SPRYCEL [Suspect]
     Active Substance: DASATINIB
     Dosage: FREQUENCY : DAILY;?
     Route: 048

REACTIONS (4)
  - Pyrexia [None]
  - Myalgia [None]
  - Paraesthesia [None]
  - Hypoaesthesia [None]

NARRATIVE: CASE EVENT DATE: 20230429
